FAERS Safety Report 13721128 (Version 2)
Quarter: 2020Q3

REPORT INFORMATION
  Report Type: Report from Study
  Country: JP (occurrence: JP)
  Receive Date: 20170706
  Receipt Date: 20180314
  Transmission Date: 20201105
  Serious: Yes (Death, Hospitalization)
  Sender: FDA-Public Use
  Company Number: JP-ASTRAZENECA-2016SF17675

PATIENT
  Age: 26627 Day
  Sex: Female
  Weight: 43 kg

DRUGS (21)
  1. TREMELIMUMAB. [Suspect]
     Active Substance: TREMELIMUMAB
     Indication: NON-SMALL CELL LUNG CANCER
     Dosage: 43.4MG ONCE/SINGLE ADMINISTRATION
     Route: 042
     Dates: start: 20160726, end: 20160726
  2. CODEINE PHOSPHATE HYDRATE [Concomitant]
     Active Substance: CODEINE PHOSPHATE
     Indication: COUGH
     Route: 048
     Dates: start: 20160714, end: 20161104
  3. DOMPERIDONE [Concomitant]
     Active Substance: DOMPERIDONE
     Indication: NAUSEA
     Route: 048
     Dates: start: 20160728, end: 20160920
  4. DENOSUMAB [Concomitant]
     Active Substance: DENOSUMAB
     Indication: METASTASES TO BONE
     Route: 058
     Dates: start: 20160901
  5. MAGNESIUM OXIDE. [Concomitant]
     Active Substance: MAGNESIUM OXIDE
     Indication: CONSTIPATION
     Dosage: 330.0MG AS REQUIRED
     Route: 048
     Dates: start: 20160714, end: 20161030
  6. SENNOSIDE A+B CALCIUM [Concomitant]
     Active Substance: SENNOSIDES A AND B
     Indication: CONSTIPATION
     Dosage: 12.0MG AS REQUIRED
     Route: 048
     Dates: start: 20160726, end: 20161107
  7. LOXOPROFEN SODIUM [Concomitant]
     Active Substance: LOXOPROFEN SODIUM
     Indication: BACK PAIN
     Dosage: 100.0MG AS REQUIRED
     Route: 062
     Dates: start: 20160825
  8. DIPHENHYDRAMINE. [Concomitant]
     Active Substance: DIPHENHYDRAMINE
     Indication: PRURITUS
     Dosage: 1.0% AS REQUIRED
     Route: 003
     Dates: start: 20160726, end: 20160927
  9. MEDI4736 [Suspect]
     Active Substance: DURVALUMAB
     Indication: NON-SMALL CELL LUNG CANCER
     Dosage: 868.0MG ONCE/SINGLE ADMINISTRATION
     Route: 042
     Dates: start: 20160726, end: 20160726
  10. MEDI4736 [Suspect]
     Active Substance: DURVALUMAB
     Indication: NON-SMALL CELL LUNG CANCER
     Dosage: 772.0MG ONCE/SINGLE ADMINISTRATION
     Route: 042
     Dates: start: 20161018, end: 20161018
  11. TREMELIMUMAB. [Suspect]
     Active Substance: TREMELIMUMAB
     Indication: NON-SMALL CELL LUNG CANCER
     Dosage: 43.4MG ONCE/SINGLE ADMINISTRATION
     Route: 042
     Dates: start: 20160825, end: 20160825
  12. TREMELIMUMAB. [Suspect]
     Active Substance: TREMELIMUMAB
     Indication: NON-SMALL CELL LUNG CANCER
     Dosage: 38.6MG ONCE/SINGLE ADMINISTRATION
     Route: 042
     Dates: start: 20160921, end: 20160921
  13. TREMELIMUMAB. [Suspect]
     Active Substance: TREMELIMUMAB
     Indication: NON-SMALL CELL LUNG CANCER
     Dosage: 36.6MG ONCE/SINGLE ADMINISTRATION
     Route: 042
     Dates: start: 20161018, end: 20161018
  14. OLANZAPINE. [Concomitant]
     Active Substance: OLANZAPINE
     Indication: PROPHYLAXIS OF NAUSEA AND VOMITING
     Route: 048
     Dates: start: 20160921, end: 20161107
  15. PREDNISOLONE. [Concomitant]
     Active Substance: PREDNISOLONE
     Indication: BRAIN OEDEMA
     Route: 048
     Dates: start: 20160901, end: 20160927
  16. AMBROXOL HYDROCHLORIDE [Concomitant]
     Active Substance: AMBROXOL HYDROCHLORIDE
     Indication: PRODUCTIVE COUGH
     Route: 048
     Dates: start: 20160901, end: 20161031
  17. PRACIPITATED CALCIUM CARBONATE CHOLECALCIFEROL MAGNESIUM CARBONATE [Concomitant]
     Indication: METASTASES TO BONE
     Route: 048
     Dates: start: 20160902, end: 20161107
  18. MEDI4736 [Suspect]
     Active Substance: DURVALUMAB
     Indication: NON-SMALL CELL LUNG CANCER
     Dosage: 772.0MG ONCE/SINGLE ADMINISTRATION
     Route: 042
     Dates: start: 20160921, end: 20160921
  19. MEDI4736 [Suspect]
     Active Substance: DURVALUMAB
     Indication: NON-SMALL CELL LUNG CANCER
     Dosage: 868.0MG ONCE/SINGLE ADMINISTRATION
     Route: 042
     Dates: start: 20160825, end: 20160825
  20. DOMPERIDONE [Concomitant]
     Active Substance: DOMPERIDONE
     Indication: NAUSEA
     Dosage: 60.0MG AS REQUIRED
     Route: 054
     Dates: start: 20160921, end: 20161107
  21. LANSOPRAZOLE. [Concomitant]
     Active Substance: LANSOPRAZOLE
     Indication: GASTRITIS PROPHYLAXIS
     Route: 048
     Dates: start: 20160901, end: 20161104

REACTIONS (1)
  - Gait disturbance [Not Recovered/Not Resolved]

NARRATIVE: CASE EVENT DATE: 20160928
